FAERS Safety Report 6241514-1 (Version None)
Quarter: 2009Q2

REPORT INFORMATION
  Report Type: 
  Country: None (occurrence: None)
  Receive Date: 20090623
  Receipt Date: 20031022
  Transmission Date: 20091009
  Serious: Yes (Death, Life-Threatening, Hospitalization)
  Sender: FDA-Public Use
  Company Number: DE-ROCHE-349696

PATIENT
  Sex: Female

DRUGS (49)
  1. DACLIZUMAB [Suspect]
     Dosage: FORMULATION AND STRENGTH PER PROTOCOL. BASELINE VISIT.
     Route: 042
     Dates: start: 20030817
  2. DACLIZUMAB [Suspect]
     Route: 042
     Dates: start: 20030830
  3. DACLIZUMAB [Suspect]
     Route: 042
     Dates: start: 20030911, end: 20031011
  4. MYCOPHENOLATE MOFETIL [Suspect]
     Route: 048
     Dates: start: 20030817
  5. MYCOPHENOLATE MOFETIL [Suspect]
     Route: 048
     Dates: start: 20030818
  6. MYCOPHENOLATE MOFETIL [Suspect]
     Route: 048
     Dates: start: 20030826
  7. MYCOPHENOLATE MOFETIL [Suspect]
     Route: 048
     Dates: start: 20030905
  8. MYCOPHENOLATE MOFETIL [Suspect]
     Route: 048
     Dates: start: 20030923, end: 20030926
  9. MYCOPHENOLATE MOFETIL [Suspect]
     Route: 048
     Dates: start: 20031011, end: 20031020
  10. MYCOPHENOLATE MOFETIL [Suspect]
     Route: 048
     Dates: start: 20031028
  11. MYCOPHENOLATE MOFETIL [Suspect]
     Route: 048
     Dates: start: 20031029, end: 20031112
  12. TACROLIMUS [Suspect]
     Route: 048
     Dates: start: 20030817, end: 20030827
  13. TACROLIMUS [Suspect]
     Route: 048
     Dates: start: 20030828, end: 20030903
  14. TACROLIMUS [Suspect]
     Route: 048
     Dates: start: 20030904, end: 20030906
  15. TACROLIMUS [Suspect]
     Route: 048
     Dates: start: 20030907, end: 20030925
  16. TACROLIMUS [Suspect]
     Route: 048
     Dates: start: 20030926, end: 20031102
  17. TACROLIMUS [Suspect]
     Route: 048
     Dates: start: 20031103, end: 20031115
  18. METHYLPREDNISOLONE [Suspect]
     Dosage: STOP DATE REPORTED AS: 29 OCT.
     Route: 042
  19. METHYLPREDNISOLONE [Suspect]
     Route: 042
     Dates: start: 20030816, end: 20030818
  20. METHYLPREDNISOLONE [Suspect]
     Route: 042
     Dates: start: 20031020
  21. METHYLPREDNISOLONE [Suspect]
     Route: 042
     Dates: start: 20031023
  22. METHYLPREDNISOLONE [Suspect]
     Route: 042
     Dates: start: 20031025
  23. METHYLPREDNISOLONE [Suspect]
     Route: 042
     Dates: start: 20031027, end: 20031028
  24. URBASON [Suspect]
     Route: 048
     Dates: start: 20030819
  25. URBASON [Suspect]
     Route: 048
     Dates: start: 20030826
  26. URBASON [Suspect]
     Route: 048
     Dates: start: 20030902
  27. URBASON [Suspect]
     Route: 048
     Dates: start: 20031010
  28. URBASON [Suspect]
     Route: 048
     Dates: start: 20031018, end: 20031019
  29. URBASON [Suspect]
     Route: 048
     Dates: start: 20031029
  30. URBASON [Suspect]
     Route: 048
     Dates: start: 20031103
  31. URBASON [Suspect]
     Route: 048
     Dates: start: 20031104
  32. URBASON [Suspect]
     Route: 048
     Dates: start: 20031112, end: 20031115
  33. HYDROCORTISON [Suspect]
     Route: 042
     Dates: end: 20031023
  34. HYDROCORTISON [Suspect]
     Route: 042
     Dates: start: 20031114
  35. PRAVASTATIN SODIUM [Concomitant]
  36. BELOC-ZOK [Concomitant]
     Route: 048
     Dates: start: 20030821
  37. BELOC-ZOK [Concomitant]
     Route: 048
     Dates: start: 20030926
  38. BELOC-ZOK [Concomitant]
     Route: 048
     Dates: start: 20031010, end: 20031020
  39. BELOC-ZOK [Concomitant]
     Route: 048
     Dates: start: 20031029
  40. BELOC-ZOK [Concomitant]
     Route: 048
     Dates: start: 20031101
  41. BELOC-ZOK [Concomitant]
     Route: 048
     Dates: start: 20031114, end: 20031115
  42. NORVASC [Concomitant]
     Route: 048
     Dates: start: 20030818, end: 20030904
  43. NORVASC [Concomitant]
     Route: 048
     Dates: start: 20031030
  44. NORVASC [Concomitant]
     Route: 048
     Dates: start: 20031114, end: 20031115
  45. CEFAZOLIN [Concomitant]
     Route: 042
     Dates: start: 20030817, end: 20030822
  46. CEFPODOXIME PROXETIL [Concomitant]
     Route: 048
     Dates: end: 20030831
  47. CEFPODOXIME PROXETIL [Concomitant]
     Route: 048
     Dates: start: 20030910, end: 20030915
  48. CEFPODOXIME PROXETIL [Concomitant]
     Dosage: DRUG NAME REPORTED AS: CEFPODOXIM.
     Route: 048
     Dates: start: 20030928
  49. MOXIFLOXACIN HCL [Concomitant]
     Route: 048
     Dates: start: 20030831, end: 20030905

REACTIONS (5)
  - DIARRHOEA [None]
  - MULTI-ORGAN FAILURE [None]
  - PERITONITIS [None]
  - RENAL FAILURE ACUTE [None]
  - SEPSIS [None]
